FAERS Safety Report 7737922-X (Version None)
Quarter: 2011Q3

REPORT INFORMATION
  Report Type: 
  Country: None (occurrence: None)
  Receive Date: 20110908
  Receipt Date: 20110906
  Transmission Date: 20111222
  Serious: Yes (Death, Other)
  Sender: FDA-Public Use
  Company Number: PHHY2010CA64352

PATIENT
  Sex: Female

DRUGS (2)
  1. ZOMETA [Suspect]
     Indication: BREAST CANCER
     Dosage: 4 MG, EVERY 4 WEEKS
     Route: 042
     Dates: start: 20100831
  2. ZOMETA [Suspect]
     Indication: COLON CANCER

REACTIONS (17)
  - RECTAL CANCER RECURRENT [None]
  - PLATELET COUNT DECREASED [None]
  - MEAN PLATELET VOLUME DECREASED [None]
  - BLOOD BILIRUBIN INCREASED [None]
  - ASPARTATE AMINOTRANSFERASE INCREASED [None]
  - BLOOD ALKALINE PHOSPHATASE INCREASED [None]
  - ALANINE AMINOTRANSFERASE INCREASED [None]
  - BLOOD CHLORIDE DECREASED [None]
  - MALAISE [None]
  - METASTASES TO LUNG [None]
  - RED CELL DISTRIBUTION WIDTH INCREASED [None]
  - BLOOD SODIUM DECREASED [None]
  - MEAN CELL HAEMOGLOBIN INCREASED [None]
  - RESPIRATORY FAILURE [None]
  - BLOOD LACTATE DEHYDROGENASE INCREASED [None]
  - GAMMA-GLUTAMYLTRANSFERASE INCREASED [None]
  - METASTASES TO LIVER [None]
